FAERS Safety Report 5581661-0 (Version None)
Quarter: 2008Q1

REPORT INFORMATION
  Report Type: 
  Country: None (occurrence: None)
  Receive Date: 20080104
  Receipt Date: 20071224
  Transmission Date: 20080703
  Serious: Yes (Life-Threatening, Hospitalization)
  Sender: FDA-Public Use
  Company Number: BE-AMGEN-UK257044

PATIENT
  Sex: Male

DRUGS (4)
  1. PANITUMUMAB [Suspect]
     Indication: SQUAMOUS CELL CARCINOMA
     Route: 042
     Dates: start: 20071030, end: 20071127
  2. LEVOTHYROXINE SODIUM [Concomitant]
     Route: 048
     Dates: start: 20071025, end: 20071223
  3. TRAZOLAN [Concomitant]
     Route: 048
     Dates: end: 20071212
  4. MORPHINE [Concomitant]
     Route: 048
     Dates: start: 20070501, end: 20071223

REACTIONS (1)
  - RENAL FAILURE [None]
